FAERS Safety Report 6465971-0 (Version None)
Quarter: 2009Q4

REPORT INFORMATION
  Report Type: 
  Country: None (occurrence: None)
  Receive Date: 20091201
  Receipt Date: 20091201
  Transmission Date: 20100525
  Serious: Yes (Other)
  Sender: FDA-Public Use
  Company Number: None

PATIENT
  Age: 25 Year
  Sex: Female
  Weight: 72.5755 kg

DRUGS (1)
  1. BUPROPION HCL [Suspect]
     Indication: BIPOLAR DISORDER
     Dosage: 300 MG XL DAILY ORAL 2008 OR 2007
     Route: 048

REACTIONS (2)
  - NAUSEA [None]
  - TREMOR [None]
